FAERS Safety Report 8578793-1 (Version None)
Quarter: 2012Q3

REPORT INFORMATION
  Report Type: 
  Country: None (occurrence: None)
  Receive Date: 20120808
  Receipt Date: 20120731
  Transmission Date: 20120928
  Serious: Yes (Hospitalization)
  Sender: FDA-Public Use
  Company Number: FR-SANOFI-AVENTIS-2012SA054386

PATIENT
  Age: 74 Year
  Sex: Male

DRUGS (14)
  1. PLAVIX [Suspect]
     Route: 048
     Dates: start: 20120611
  2. ATORVASTATIN [Suspect]
     Route: 048
     Dates: start: 20120611
  3. ATACAND [Concomitant]
  4. OFLOXACIN [Suspect]
     Route: 048
     Dates: start: 20120621, end: 20120705
  5. TARGOCID [Suspect]
     Route: 042
     Dates: start: 20120621, end: 20120705
  6. ASPIRIN [Concomitant]
  7. LASIX [Concomitant]
  8. NOVOLOG MIX 70/30 [Concomitant]
  9. AMLODIPINE BESYLATE [Suspect]
     Route: 048
     Dates: start: 20120611
  10. EZETIMIBE [Concomitant]
     Dates: end: 20120611
  11. ERGOCALCIFEROL [Concomitant]
  12. BISOPROLOL FUMARATE [Suspect]
     Route: 048
     Dates: start: 20120611
  13. SECTRAL [Concomitant]
     Route: 065
     Dates: end: 20120611
  14. ALFUZOSIN HYDROCHLORIDE [Concomitant]

REACTIONS (3)
  - RENAL FAILURE ACUTE [None]
  - PYREXIA [None]
  - EOSINOPHILIA [None]
